FAERS Safety Report 11987301 (Version 1)
Quarter: 2016Q1

REPORT INFORMATION
  Report Type: Report from Study
  Country: CA (occurrence: CA)
  Receive Date: 20160202
  Receipt Date: 20160202
  Transmission Date: 20160526
  Serious: Yes (Other)
  Sender: FDA-Public Use
  Company Number: CA-ROCHE-1352160

PATIENT
  Age: 54 Year
  Sex: Male
  Weight: 64 kg

DRUGS (15)
  1. PREDNISONE. [Concomitant]
     Active Substance: PREDNISONE
     Route: 065
  2. RITUXAN [Suspect]
     Active Substance: RITUXIMAB
     Indication: RHEUMATOID ARTHRITIS
     Dosage: DAY1, DAY15
     Route: 042
     Dates: start: 20140604
  3. METHOTREXATE [Suspect]
     Active Substance: METHOTREXATE
     Indication: PRODUCT USED FOR UNKNOWN INDICATION
     Route: 065
     Dates: start: 201204, end: 201401
  4. FOLIC ACID. [Concomitant]
     Active Substance: FOLIC ACID
  5. DIPHENHYDRAMINE HCL [Concomitant]
     Active Substance: DIPHENHYDRAMINE HYDROCHLORIDE
     Route: 048
     Dates: start: 20140604
  6. PLAQUENIL [Concomitant]
     Active Substance: HYDROXYCHLOROQUINE SULFATE
  7. CELEBREX [Concomitant]
     Active Substance: CELECOXIB
  8. EURO-DOCUSATE C [Concomitant]
  9. ACTEMRA [Suspect]
     Active Substance: TOCILIZUMAB
     Indication: RHEUMATOID ARTHRITIS
     Route: 042
     Dates: start: 20130322, end: 20140407
  10. METHOTREXATE [Suspect]
     Active Substance: METHOTREXATE
     Route: 058
  11. ACETAMINOPHEN. [Concomitant]
     Active Substance: ACETAMINOPHEN
     Route: 048
     Dates: start: 20140604
  12. ACTEMRA [Suspect]
     Active Substance: TOCILIZUMAB
     Route: 042
     Dates: start: 20130712, end: 20140407
  13. TRAMCET [Concomitant]
     Active Substance: ACETAMINOPHEN\TRAMADOL
  14. TRIMETHOPRIM. [Concomitant]
     Active Substance: TRIMETHOPRIM
  15. METHYLPREDNISOLONE. [Concomitant]
     Active Substance: METHYLPREDNISOLONE
     Route: 042
     Dates: start: 20140604

REACTIONS (15)
  - Laryngitis [Recovered/Resolved]
  - Rheumatoid arthritis [Unknown]
  - Weight increased [Unknown]
  - Infusion related reaction [Unknown]
  - Neutropenia [Unknown]
  - Pain [Unknown]
  - Aphonia [Recovered/Resolved]
  - Oxygen saturation decreased [Unknown]
  - Blood pressure increased [Unknown]
  - Haemochromatosis [Unknown]
  - Infusion site extravasation [Recovered/Resolved]
  - Blood pressure increased [Unknown]
  - Arthralgia [Unknown]
  - Drug ineffective [Unknown]
  - Blood pressure fluctuation [Unknown]

NARRATIVE: CASE EVENT DATE: 201312
